FAERS Safety Report 22621025 (Version 1)
Quarter: 2023Q2

REPORT INFORMATION
  Report Type: Spontaneous
  Country: US (occurrence: None)
  Receive Date: 20230616
  Receipt Date: 20230616
  Transmission Date: 20230721
  Serious: Yes (Other)
  Sender: FDA-Public Use
  Company Number: None

PATIENT
  Age: 64 Year
  Sex: Male

DRUGS (1)
  1. BIKTARVY [Suspect]
     Active Substance: BICTEGRAVIR SODIUM\EMTRICITABINE\TENOFOVIR ALAFENAMIDE FUMARATE
     Indication: HIV infection
     Dosage: 50/200/25MG  ONCE DAILY ORAL? ?
     Route: 048
     Dates: start: 202106

REACTIONS (4)
  - Cerebrovascular accident [None]
  - Erythema [None]
  - Hyperhidrosis [None]
  - Facial paralysis [None]

NARRATIVE: CASE EVENT DATE: 20230609
